FAERS Safety Report 19496304 (Version 1)
Quarter: 2021Q3

REPORT INFORMATION
  Report Type: Spontaneous
  Country: US (occurrence: US)
  Receive Date: 20210706
  Receipt Date: 20210706
  Transmission Date: 20211014
  Serious: Yes (Death, Other)
  Sender: FDA-Public Use
  Company Number: US-GLAXOSMITHKLINE-US2021000028

PATIENT
  Sex: Male

DRUGS (1)
  1. ANORO ELLIPTA [Suspect]
     Active Substance: UMECLIDINIUM BROMIDE\VILANTEROL TRIFENATATE
     Indication: CHRONIC OBSTRUCTIVE PULMONARY DISEASE
     Dosage: UNK
     Dates: start: 20200901, end: 20200901

REACTIONS (5)
  - Sepsis [Unknown]
  - Pleural effusion [Unknown]
  - Sudden death [Fatal]
  - Prostate cancer [Unknown]
  - Emphysema [Unknown]

NARRATIVE: CASE EVENT DATE: 20200901
